FAERS Safety Report 17665060 (Version 7)
Quarter: 2022Q3

REPORT INFORMATION
  Report Type: Spontaneous
  Country: DE (occurrence: DE)
  Receive Date: 20200414
  Receipt Date: 20220924
  Transmission Date: 20221027
  Serious: Yes (Life-Threatening, Hospitalization, Other)
  Sender: FDA-Public Use
  Company Number: None

PATIENT
  Age: 69 Year
  Sex: Male
  Weight: 77 kg

DRUGS (22)
  1. ALLOPURINOL [Interacting]
     Active Substance: ALLOPURINOL
     Indication: Gout
     Dosage: ALLOPURINOL 100 MG, DAILY
     Dates: start: 201808
  2. AMLODIPINE [Interacting]
     Active Substance: AMLODIPINE BESYLATE
     Indication: Hypertension
     Dosage: 1-0-1 STRENGTH 5 MG, ALSO RECEIVED 10 MG
     Dates: start: 201808
  3. RAMIPRIL [Interacting]
     Active Substance: RAMIPRIL
     Indication: Hypertension
     Dosage: 1-0-1 STRENGTH 5 MG, ALSO RECEIVED 10 MG
     Route: 065
     Dates: start: 201808
  4. SIMVASTATIN [Interacting]
     Active Substance: SIMVASTATIN
     Indication: Coronary artery disease
     Dosage: 0-0-1 40 MG, ALSO RECEIVED ON 06-MAY-2011
     Route: 048
     Dates: start: 201808
  5. SPIRONOLACTONE [Interacting]
     Active Substance: SPIRONOLACTONE
     Indication: Cardiac disorder
     Dosage: 1-0-0 STRENGTH 50 MG,  QD, IN MORNING,??ALSO RECEIVED ON 06-MAY-2011
     Route: 048
     Dates: start: 201808
  6. AVASTIN [Interacting]
     Active Substance: BEVACIZUMAB
     Indication: Diabetic retinal oedema
     Dosage: INJECT INTO THE RIGHT EYE AT 13.30
     Route: 031
     Dates: start: 20200115
  7. CARVEDILOL [Interacting]
     Active Substance: CARVEDILOL
     Indication: Cardiac disorder
     Dosage: 1-0-1 STRENGTH 25
     Route: 065
     Dates: start: 201808
  8. ELIQUIS [Interacting]
     Active Substance: APIXABAN
     Indication: Atrial fibrillation
     Dosage: 1-0-1 STRENGTH 5 MG
     Dates: start: 201808
  9. INSULIN GLARGINE [Interacting]
     Active Substance: INSULIN GLARGINE
     Indication: Diabetes mellitus
     Dosage: 15 IU IN THE EVENING
     Dates: start: 201808
  10. JANUMET [Interacting]
     Active Substance: METFORMIN HYDROCHLORIDE\SITAGLIPTIN PHOSPHATE
     Indication: Diabetes mellitus
     Dosage: 1-0-1   50/1000MG
     Dates: start: 201808
  11. BENFOTIAMINE [Interacting]
     Active Substance: BENFOTIAMINE
     Indication: Cardiovascular disorder
     Dosage: 1 STRENGTH 300 MG
     Route: 065
     Dates: start: 201808
  12. IVABRADINE [Interacting]
     Active Substance: IVABRADINE
     Indication: Cardiac disorder
     Dosage: 1-0-0 STRENGTH 7.5 MG
     Route: 065
     Dates: start: 201808
  13. TORSEMIDE [Interacting]
     Active Substance: TORSEMIDE
     Indication: Renal disorder
     Dosage: 1-0-0 STRENGTH 10 MG,  QD IN MORNING, DAILY,1-0-0
     Dates: start: 201808
  14. LEVETIRACETAM [Concomitant]
     Active Substance: LEVETIRACETAM
     Dosage: STRENGTH: 500 MG; 1-0-1
  15. JANUMET [Interacting]
     Active Substance: METFORMIN HYDROCHLORIDE\SITAGLIPTIN PHOSPHATE
     Indication: Diabetes mellitus
     Dosage: 1 DOSAGE FORM, Q12H
     Route: 065
     Dates: start: 201808
  16. ELIQUIS [Interacting]
     Active Substance: APIXABAN
     Indication: Atrial fibrillation
     Dosage: 1-0-1 STRENGTH 5 MG
     Route: 065
     Dates: start: 201808
  17. SPIRONOLACTONE [Interacting]
     Active Substance: SPIRONOLACTONE
     Indication: Cardiac disorder
     Dosage: 1-0-0 STRENGTH 50 MG,  QD, IN MORNING,??ALSO RECEIVED ON 06-MAY-2011
     Route: 048
     Dates: start: 20110506
  18. SIMVASTATIN [Interacting]
     Active Substance: SIMVASTATIN
     Indication: Coronary artery disease
     Dosage: 40 MILLIGRAM, DAILY,0-0-1
     Route: 048
     Dates: start: 20110506
  19. SIMVASTATIN [Interacting]
     Active Substance: SIMVASTATIN
     Indication: Diabetes mellitus
     Dosage: 10 MILLIGRAM, DAILY
     Route: 065
     Dates: start: 201808
  20. SIMVASTATIN [Interacting]
     Active Substance: SIMVASTATIN
     Indication: Product used for unknown indication
     Dosage: 15 INTERNATIONAL UNIT, DAILY
     Route: 065
     Dates: start: 201808
  21. SIMVASTATIN [Interacting]
     Active Substance: SIMVASTATIN
     Indication: Hypertension
     Dosage: 50 MILLIGRAM, DAILY
     Route: 065
     Dates: start: 201808
  22. SIMVASTATIN [Interacting]
     Active Substance: SIMVASTATIN
     Indication: Gout
     Dosage: 10 MILLIGRAM, QD, ALSO RECEIVED 50 MG, 100 MG, 15 IU AND 40 MG
     Dates: start: 201808

REACTIONS (7)
  - Drug interaction [Unknown]
  - Movement disorder [Recovered/Resolved]
  - Seizure [Recovered/Resolved]
  - Eye movement disorder [Recovered/Resolved]
  - Oculogyric crisis [Recovered/Resolved]
  - Status epilepticus [Recovering/Resolving]
  - Muscle spasms [Recovered/Resolved]

NARRATIVE: CASE EVENT DATE: 20200101
